FAERS Safety Report 12482879 (Version 9)
Quarter: 2017Q1

REPORT INFORMATION
  Report Type: Report from Study
  Country: FR (occurrence: FR)
  Receive Date: 20160620
  Receipt Date: 20170117
  Transmission Date: 20170428
  Serious: Yes (Hospitalization)
  Sender: FDA-Public Use
  Company Number: FR-ROCHE-1731292

PATIENT
  Age: 43 Year
  Sex: Male
  Weight: 70 kg

DRUGS (15)
  1. XATRAL [Concomitant]
     Active Substance: ALFUZOSIN
     Indication: URINARY RETENTION
     Route: 065
     Dates: start: 2014
  2. RITUXIMAB [Suspect]
     Active Substance: RITUXIMAB
     Indication: B-CELL LYMPHOMA
     Dosage: MOST RECENT DOSE 700 MG OF RITUXIMAB  WAS ADMINISTERED ON 08/MAR/2016 AT 1400 HOUR PRIOR TO AE ONSET
     Route: 042
     Dates: start: 20151215
  3. CYCLOPHOSPHAMIDE. [Suspect]
     Active Substance: CYCLOPHOSPHAMIDE
     Indication: NON-HODGKIN^S LYMPHOMA
     Dosage: MOST RECENT DOSE 1417.5  MG OF CYCLOPHOSPHAMIDE WAS ADMINISTERED ON 08/MAR/2016 AT 1730 HOUR PRIOR T
     Route: 065
     Dates: start: 20151215
  4. DOXORUBICIN [Suspect]
     Active Substance: DOXORUBICIN
     Indication: NON-HODGKIN^S LYMPHOMA
     Dosage: MOST RECENT DOSE 94.5 MG OF DOXORUBICIN WAS ADMINISTERED ON 08/MAR/2016 AT 1650 HOUR  PRIOR TO AE ON
     Route: 065
     Dates: start: 20151215
  5. PREDNISONE. [Suspect]
     Active Substance: PREDNISONE
     Indication: NON-HODGKIN^S LYMPHOMA
     Dosage: MOST RECENT DOSE OF PREDNISONE WAS ADMINISTERED ON 12/MAR/2016 PRIOR TO AE ONSET
     Route: 065
     Dates: start: 20151215
  6. ONDANSETRON [Concomitant]
     Active Substance: ONDANSETRON
     Indication: PREMEDICATION
     Route: 065
     Dates: start: 20160308, end: 20160308
  7. GRANOCYTE 34 [Concomitant]
     Active Substance: LENOGRASTIM
     Route: 065
     Dates: start: 20160314, end: 20160320
  8. VINCRISTINE [Suspect]
     Active Substance: VINCRISTINE
     Indication: NON-HODGKIN^S LYMPHOMA
     Dosage: MOST RECENT DOSE 2 MG OF VINCRISTINE WAS ADMINISTERED ON 08/MAR/2016 AT 1620 HOUR  PRIOR TO AE ONSET
     Route: 065
     Dates: start: 20151215
  9. GRANOCYTE 34 [Concomitant]
     Active Substance: LENOGRASTIM
     Indication: PREMEDICATION
     Route: 065
     Dates: start: 20160218, end: 20160224
  10. VENETOCLAX [Suspect]
     Active Substance: VENETOCLAX
     Indication: B-CELL LYMPHOMA
     Dosage: MOST RECENT DOSE 800 MG OF VENETOCLAX WAS ADMINISTERED ON 17/MAR/2016 PRIOR TO AE ONSET
     Route: 048
     Dates: start: 20151218
  11. POLARAMINE [Concomitant]
     Active Substance: DEXCHLORPHENIRAMINE MALEATE
     Indication: PREMEDICATION
     Route: 065
     Dates: start: 20160308, end: 20160308
  12. AUGMENTIN [Concomitant]
     Active Substance: AMOXICILLIN\CLAVULANATE POTASSIUM
     Indication: PYREXIA
     Route: 065
     Dates: start: 20160317, end: 20160322
  13. TAZOCILLINE [Concomitant]
     Active Substance: PIPERACILLIN SODIUM\TAZOBACTAM SODIUM
     Indication: PYREXIA
     Route: 065
     Dates: start: 20160322, end: 20160329
  14. PARACETAMOL [Concomitant]
     Active Substance: ACETAMINOPHEN
     Indication: PREMEDICATION
     Route: 065
     Dates: start: 20160308, end: 20160308
  15. TAVANIC [Concomitant]
     Active Substance: LEVOFLOXACIN
     Indication: PYREXIA
     Route: 065
     Dates: start: 20160322, end: 20160329

REACTIONS (1)
  - Pneumocystis jirovecii pneumonia [Recovered/Resolved]

NARRATIVE: CASE EVENT DATE: 20160322
